FAERS Safety Report 19423296 (Version 2)
Quarter: 2021Q3

REPORT INFORMATION
  Report Type: Spontaneous
  Country: IR (occurrence: IR)
  Receive Date: 20210616
  Receipt Date: 20210927
  Transmission Date: 20211014
  Serious: Yes (Death, Hospitalization)
  Sender: FDA-Public Use
  Company Number: IR-PFIZER INC-2021685127

PATIENT
  Age: 14 Year
  Sex: Female

DRUGS (8)
  1. SODIUM BICARBONATE. [Suspect]
     Active Substance: SODIUM BICARBONATE
     Indication: METABOLIC ACIDOSIS
     Dosage: 100 MILLILITER (LOADING DOSE)
  2. HYDROCORTISONE SODIUM SUCCINATE [Suspect]
     Active Substance: HYDROCORTISONE SODIUM SUCCINATE
     Indication: ANAPHYLACTIC SHOCK
     Dosage: UNK
     Route: 065
  3. EPINEPHRINE. [Suspect]
     Active Substance: EPINEPHRINE
     Indication: ANAPHYLACTIC SHOCK
     Dosage: UNK
     Route: 065
  4. VITAMIN K [Suspect]
     Active Substance: PHYTONADIONE
     Indication: COAGULOPATHY
     Dosage: 2.5 MILLIGRAM (SINGLE DOSE)
     Route: 048
  5. SODIUM BICARBONATE. [Suspect]
     Active Substance: SODIUM BICARBONATE
     Dosage: 150 MILLILITER, Q8H
  6. NOREPINEPHRINE. [Suspect]
     Active Substance: NOREPINEPHRINE
     Dosage: 5 MICROGRAM/KILOGRAM, QMINUTE (2?5MICROGRAM/KG/MIN)
  7. NOREPINEPHRINE. [Suspect]
     Active Substance: NOREPINEPHRINE
     Indication: HYPOTENSION
     Dosage: 2 MICROGRAM/KILOGRAM, QMINUTE (2?5MICROGRAM/KG/MIN)
  8. CHLORPHENAMINE [Suspect]
     Active Substance: CHLORPHENIRAMINE MALEATE
     Indication: ANAPHYLACTIC SHOCK
     Dosage: UNK
     Route: 065

REACTIONS (1)
  - Drug ineffective [Fatal]
